FAERS Safety Report 17260121 (Version 1)
Quarter: 2020Q1

REPORT INFORMATION
  Report Type: Spontaneous
  Country: US (occurrence: US)
  Receive Date: 20200111
  Receipt Date: 20200111
  Transmission Date: 20200409
  Serious: No
  Sender: FDA-Public Use
  Company Number: US-009507513-1912USA012704

PATIENT
  Age: 4 Month
  Sex: Female

DRUGS (3)
  1. TEMODAR [Suspect]
     Active Substance: TEMOZOLOMIDE
     Indication: GANGLIOGLIOMA
     Dosage: UNK
  2. VP-16 [Concomitant]
     Active Substance: ETOPOSIDE
     Indication: GANGLIOGLIOMA
  3. CARBOPLATIN. [Concomitant]
     Active Substance: CARBOPLATIN
     Indication: GANGLIOGLIOMA

REACTIONS (1)
  - Product use issue [Unknown]
